FAERS Safety Report 21967789 (Version 1)
Quarter: 2023Q1

REPORT INFORMATION
  Report Type: Spontaneous
  Country: US (occurrence: US)
  Receive Date: 20230208
  Receipt Date: 20230208
  Transmission Date: 20230418
  Serious: No
  Sender: FDA-Public Use
  Company Number: US-JNJFOC-20230201742

PATIENT
  Age: 11 Year
  Sex: Male

DRUGS (5)
  1. TYLENOL [Suspect]
     Active Substance: ACETAMINOPHEN
     Indication: Headache
     Route: 065
     Dates: start: 20230106
  2. TYLENOL [Suspect]
     Active Substance: ACETAMINOPHEN
     Indication: Abdominal pain upper
  3. REMODULIN [Concomitant]
     Active Substance: TREPROSTINIL
     Indication: Pulmonary arterial hypertension
     Dosage: CONCENTRATION 5 MG/ML
     Route: 041
     Dates: start: 202201
  4. REMODULIN [Concomitant]
     Active Substance: TREPROSTINIL
     Route: 041
  5. ADCIRCA [Concomitant]
     Active Substance: TADALAFIL
     Indication: Pulmonary arterial hypertension
     Dosage: 40 MG, QD, ORAL USE
     Route: 048
     Dates: start: 20220125

REACTIONS (1)
  - Flushing [Unknown]

NARRATIVE: CASE EVENT DATE: 20230101
